FAERS Safety Report 18489793 (Version 2)
Quarter: 2020Q4

REPORT INFORMATION
  Report Type: Spontaneous
  Country: US (occurrence: US)
  Receive Date: 20201111
  Receipt Date: 20201123
  Transmission Date: 20210114
  Serious: No
  Sender: FDA-Public Use
  Company Number: US-BAYER-2020-241345

PATIENT
  Age: 71 Year
  Sex: Female

DRUGS (2)
  1. GADAVIST [Suspect]
     Active Substance: GADOBUTROL
     Indication: MAGNETIC RESONANCE IMAGING LIVER
     Dosage: 10 ML, ONCE
     Route: 042
     Dates: start: 20201104, end: 20201104
  2. NACL [Concomitant]
     Active Substance: SODIUM CHLORIDE
     Dosage: 10 ML

REACTIONS (1)
  - Procedural nausea [Recovered/Resolved]

NARRATIVE: CASE EVENT DATE: 20201104
